FAERS Safety Report 8356604-7 (Version None)
Quarter: 2012Q2

REPORT INFORMATION
  Report Type: 
  Country: None (occurrence: None)
  Receive Date: 20120514
  Receipt Date: 20120509
  Transmission Date: 20120825
  Serious: Yes (Other)
  Sender: FDA-Public Use
  Company Number: PHFR2011GB00807

PATIENT
  Sex: Female

DRUGS (6)
  1. ALBUTEROL [Concomitant]
     Indication: ASTHMA
     Dosage: 100 UG/DAY
  2. CLOZARIL [Suspect]
     Indication: SCHIZOPHRENIA
     Dosage: 250 MG/DAY
     Route: 048
     Dates: start: 20081021
  3. HYOSCINE HBR HYT [Concomitant]
     Indication: SALIVARY HYPERSECRETION
     Dosage: 300 MG/DAY
     Route: 048
  4. SALMETEROL [Concomitant]
     Indication: ASTHMA
     Dosage: 25 UG/DAY
  5. DERMOL SOL [Concomitant]
     Indication: ECZEMA
     Route: 061
  6. FLUTICASONE PROPIONATE [Concomitant]
     Indication: ASTHMA
     Dosage: 250 UG/DAY

REACTIONS (6)
  - ECZEMA [None]
  - PLATELET COUNT INCREASED [None]
  - WHITE BLOOD CELL COUNT INCREASED [None]
  - EOSINOPHIL COUNT INCREASED [None]
  - NEUTROPHIL COUNT INCREASED [None]
  - BLOOD IMMUNOGLOBULIN E INCREASED [None]
